FAERS Safety Report 13653638 (Version 1)
Quarter: 2017Q2

REPORT INFORMATION
  Report Type: Spontaneous
  Country: FR (occurrence: FR)
  Receive Date: 20170614
  Receipt Date: 20170614
  Transmission Date: 20170830
  Serious: Yes (Hospitalization)
  Sender: FDA-Public Use
  Company Number: FR-PFIZER INC-2017250708

PATIENT
  Age: 46 Year
  Sex: Male

DRUGS (9)
  1. COCAINE [Suspect]
     Active Substance: COCAINE
     Dosage: UNK
     Route: 042
     Dates: start: 1989
  2. VALIUM [Suspect]
     Active Substance: DIAZEPAM
     Dosage: MISUSE 6-7 TABLETS, DAILY
     Route: 048
     Dates: end: 201703
  3. CANNABIS [Suspect]
     Active Substance: CANNABIS SATIVA SUBSP. INDICA TOP
     Dosage: UNK, ALTERNATE DAY, INCREASED
     Route: 055
     Dates: start: 1981, end: 2001
  4. VALIUM [Suspect]
     Active Substance: DIAZEPAM
     Dosage: 10 MG, 2X/DAY
     Route: 048
  5. COCAINE [Suspect]
     Active Substance: COCAINE
     Dosage: INCREASE OF CONSUMPTIONS
     Route: 042
  6. XANAX [Suspect]
     Active Substance: ALPRAZOLAM
     Dosage: UNK
     Route: 048
     Dates: end: 201703
  7. SUBUTEX [Suspect]
     Active Substance: BUPRENORPHINE HYDROCHLORIDE
     Dosage: 16 MG, 1X/DAY
     Route: 048
     Dates: start: 1998
  8. CANNABIS [Suspect]
     Active Substance: CANNABIS SATIVA SUBSP. INDICA TOP
     Dosage: UNK, ALTERNATE DAY, DECREASED
     Route: 055
     Dates: start: 2001
  9. HEROIN [Suspect]
     Active Substance: DIAMORPHINE
     Dosage: UNK
     Route: 042
     Dates: start: 1987, end: 1998

REACTIONS (4)
  - Drug abuser [Not Recovered/Not Resolved]
  - Drug use disorder [Not Recovered/Not Resolved]
  - Intentional product misuse [Recovering/Resolving]
  - Drug use disorder [Recovering/Resolving]
